FAERS Safety Report 25441494 (Version 1)
Quarter: 2025Q2

REPORT INFORMATION
  Report Type: Spontaneous
  Country: PT (occurrence: PT)
  Receive Date: 20250616
  Receipt Date: 20250616
  Transmission Date: 20250717
  Serious: Yes (Other)
  Sender: MYLAN
  Company Number: PT-PFIZER INC-202500111919

PATIENT
  Age: 28 Year
  Sex: Female

DRUGS (12)
  1. METHOTREXATE [Suspect]
     Active Substance: METHOTREXATE
     Indication: Behcet^s syndrome
  2. METHOTREXATE [Suspect]
     Active Substance: METHOTREXATE
     Route: 065
  3. METHOTREXATE [Suspect]
     Active Substance: METHOTREXATE
     Route: 065
  4. METHOTREXATE [Suspect]
     Active Substance: METHOTREXATE
  5. COLCHICINE [Concomitant]
     Active Substance: COLCHICINE
     Indication: Behcet^s syndrome
  6. COLCHICINE [Concomitant]
     Active Substance: COLCHICINE
     Route: 065
  7. COLCHICINE [Concomitant]
     Active Substance: COLCHICINE
     Route: 065
  8. COLCHICINE [Concomitant]
     Active Substance: COLCHICINE
  9. VITAMIN C [Concomitant]
     Active Substance: ASCORBIC ACID
     Indication: Behcet^s syndrome
  10. VITAMIN C [Concomitant]
     Active Substance: ASCORBIC ACID
     Route: 065
  11. VITAMIN C [Concomitant]
     Active Substance: ASCORBIC ACID
     Route: 065
  12. VITAMIN C [Concomitant]
     Active Substance: ASCORBIC ACID

REACTIONS (2)
  - Hepatitis [Unknown]
  - Off label use [Unknown]
